FAERS Safety Report 9375597 (Version 3)
Quarter: 2013Q3

REPORT INFORMATION
  Report Type: Spontaneous
  Country: BR (occurrence: BR)
  Receive Date: 20130628
  Receipt Date: 20130905
  Transmission Date: 20140515
  Serious: Yes (Life-Threatening, Other)
  Sender: FDA-Public Use
  Company Number: PHHY2013BR065890

PATIENT
  Age: 29 Year
  Sex: Female
  Weight: 50 kg

DRUGS (8)
  1. OLCADIL [Suspect]
     Indication: ANXIETY
     Dosage: 1 DF, DAILY
     Route: 048
     Dates: start: 201207
  2. OLCADIL [Suspect]
     Indication: DEPRESSION
  3. FLUOXETINE [Suspect]
     Indication: ANXIETY
     Dosage: UNK UKN, UNK
  4. FLUOXETINE [Suspect]
     Indication: DEPRESSION
     Dosage: UNK UKN, UNK
  5. MULTI-VIT [Concomitant]
     Indication: APPETITE DISORDER
     Dosage: UNK UKN, UNK
  6. VOLTAREN//DICLOFENAC [Concomitant]
     Indication: PAIN
     Dosage: UNK UKN, UNK
  7. STRESSAN [Concomitant]
     Indication: STRESS
     Dosage: 1 DF, DAILY
     Route: 048
  8. STRESSAN [Concomitant]
     Indication: DECREASED APPETITE

REACTIONS (30)
  - Apparent death [Recovered/Resolved]
  - Suicidal ideation [Recovered/Resolved]
  - Vocal cord thickening [Not Recovered/Not Resolved]
  - Breast mass [Recovered/Resolved]
  - Breast pain [Not Recovered/Not Resolved]
  - Hallucination, visual [Recovered/Resolved]
  - Depression [Not Recovered/Not Resolved]
  - Depressed mood [Recovered/Resolved]
  - Stress [Recovering/Resolving]
  - Decreased appetite [Not Recovered/Not Resolved]
  - Crying [Recovered/Resolved]
  - Nervousness [Recovered/Resolved]
  - Mutism [Recovered/Resolved]
  - Malaise [Unknown]
  - Insomnia [Not Recovered/Not Resolved]
  - Poor quality sleep [Not Recovered/Not Resolved]
  - Headache [Unknown]
  - Drug dependence [Not Recovered/Not Resolved]
  - Peripheral coldness [Unknown]
  - Arthralgia [Unknown]
  - Renal pain [Unknown]
  - Female sexual arousal disorder [Not Recovered/Not Resolved]
  - Nightmare [Not Recovered/Not Resolved]
  - Feeling hot [Recovered/Resolved]
  - Retching [Recovered/Resolved]
  - Logorrhoea [Recovered/Resolved]
  - Memory impairment [Not Recovered/Not Resolved]
  - Dry mouth [Recovered/Resolved]
  - Anxiety [Unknown]
  - Drug ineffective [Not Recovered/Not Resolved]
